FAERS Safety Report 19321739 (Version 1)
Quarter: 2021Q2

REPORT INFORMATION
  Report Type: Spontaneous
  Country: US (occurrence: US)
  Receive Date: 20210527
  Receipt Date: 20210527
  Transmission Date: 20210717
  Serious: Yes (Death)
  Sender: FDA-Public Use
  Company Number: None

PATIENT
  Age: 81 Year
  Sex: Female

DRUGS (3)
  1. DILTIAZEM. [Suspect]
     Active Substance: DILTIAZEM
     Indication: ATRIAL FIBRILLATION
     Dosage: 1.5 HOURS??FREQ 5ML/HR
     Route: 041
  2. 0.9% 1000 ML NS DRIP [Concomitant]
     Dates: start: 20210427, end: 20210427
  3. 0.9% 500 ML NS FULL DRIP [Concomitant]
     Dates: start: 20210427, end: 20210427

REACTIONS (2)
  - Incorrect drug administration rate [None]
  - Device use error [None]

NARRATIVE: CASE EVENT DATE: 20210427
